FAERS Safety Report 7948490-1 (Version None)
Quarter: 2011Q4

REPORT INFORMATION
  Report Type: 
  Country: None (occurrence: None)
  Receive Date: 20111130
  Receipt Date: 20111125
  Transmission Date: 20120403
  Serious: Yes (Other)
  Sender: FDA-Public Use
  Company Number: GB-B.I. PHARMACEUTICALS,INC./RIDGEFIELD-2011-UK-01289UK

PATIENT
  Age: 60 Year
  Sex: Male
  Weight: 121.6 kg

DRUGS (12)
  1. AMLODIPINE [Concomitant]
     Dates: start: 20110711
  2. IRBESARTAN [Concomitant]
     Dates: start: 20110711
  3. ALLOPURINOL [Concomitant]
     Dates: start: 20110711
  4. SPIRIVA [Suspect]
     Dates: start: 20111118
  5. BENDROFLUMETHIAZIDE [Concomitant]
     Dates: start: 20111102
  6. PIOGLITAZONE [Concomitant]
     Dates: start: 20110831, end: 20110928
  7. SALMETEROL [Concomitant]
     Dates: start: 20110825, end: 20110922
  8. DOXAZOSIN MESYLATE [Concomitant]
     Dates: start: 20110711
  9. PIOGLITAZONE [Concomitant]
     Dates: start: 20111102
  10. ALBUTEROL [Concomitant]
     Dates: start: 20111102
  11. ATORVASTATIN [Concomitant]
     Dates: start: 20110711, end: 20110905
  12. ATORVASTATIN [Concomitant]
     Dates: start: 20111011

REACTIONS (2)
  - OROPHARYNGEAL PAIN [None]
  - ORAL DISCOMFORT [None]
